FAERS Safety Report 23544949 (Version 1)
Quarter: 2024Q1

REPORT INFORMATION
  Report Type: Report from Study
  Country: TW (occurrence: TW)
  Receive Date: 20240220
  Receipt Date: 20240220
  Transmission Date: 20240409
  Serious: Yes (Hospitalization, Other)
  Sender: FDA-Public Use
  Company Number: TW-JNJFOC-20240248308

PATIENT
  Age: 64 Year
  Sex: Female

DRUGS (1)
  1. SIMPONI [Suspect]
     Active Substance: GOLIMUMAB
     Indication: Rheumatoid arthritis
     Route: 058
     Dates: start: 20190827, end: 20240112

REACTIONS (1)
  - Glottis carcinoma [Unknown]

NARRATIVE: CASE EVENT DATE: 20240215
